FAERS Safety Report 23963750 (Version 1)
Quarter: 2024Q2

REPORT INFORMATION
  Report Type: Spontaneous
  Country: US (occurrence: US)
  Receive Date: 20240611
  Receipt Date: 20240611
  Transmission Date: 20240716
  Serious: No
  Sender: FDA-Public Use
  Company Number: US-RIGEL Pharmaceuticals, INC-2023FOS000425

PATIENT
  Sex: Male

DRUGS (3)
  1. TAVALISSE [Suspect]
     Active Substance: FOSTAMATINIB
     Indication: Immune thrombocytopenia
     Dosage: 100 MG, TWICE WEEKLY
     Route: 048
     Dates: start: 20210910
  2. LISINOPRIL [Concomitant]
     Active Substance: LISINOPRIL
     Indication: Product used for unknown indication
     Dosage: 20 MG, QD
  3. DIETARY SUPPLEMENT\UBIDECARENONE [Suspect]
     Active Substance: DIETARY SUPPLEMENT\UBIDECARENONE
     Indication: Product used for unknown indication

REACTIONS (7)
  - Unevaluable event [Unknown]
  - Blood triglycerides increased [Unknown]
  - Asthenia [Unknown]
  - Gastrointestinal disorder [Unknown]
  - Hypotension [Unknown]
  - Product prescribing issue [Unknown]
  - Nausea [Unknown]
